FAERS Safety Report 9146462 (Version 1)
Quarter: 2013Q1

REPORT INFORMATION
  Report Type: Spontaneous
  Country: US (occurrence: None)
  Receive Date: 20130227
  Receipt Date: 20130227
  Transmission Date: 20140127
  Serious: No
  Sender: FDA-Public Use
  Company Number: None

PATIENT
  Sex: Male

DRUGS (3)
  1. VELCADE [Suspect]
     Indication: PLASMA CELL MYELOMA
  2. DEXAMETHASONE [Suspect]
     Indication: PLASMA CELL MYELOMA
  3. CYTOXAN [Suspect]
     Indication: PLASMA CELL MYELOMA

REACTIONS (3)
  - Hiccups [None]
  - Restlessness [None]
  - Insomnia [None]
